FAERS Safety Report 8923472 (Version 1)
Quarter: 2012Q4

REPORT INFORMATION
  Report Type: 
  Country: US (occurrence: US)
  Receive Date: 20121123
  Receipt Date: 20121123
  Transmission Date: 20130627
  Serious: No
  Sender: FDA-Public Use
  Company Number: US-BAYER-2012-122413

PATIENT
  Age: 57 Year
  Sex: Female
  Weight: 84 kg

DRUGS (7)
  1. ALEVE CAPLET/TABLET,MIDOL EXTENDED RELIEF CAPLET [Suspect]
     Dosage: 400 mg, every 6 hours
     Dates: start: 20121018
  2. PREGABALIN [Concomitant]
  3. AMLODIPINE BESYLATE [Concomitant]
  4. OMEPRAZOLE [Concomitant]
  5. FOLIC ACID [Concomitant]
  6. LEVOTHYROXINE [Concomitant]
  7. VITAMIN B12 [Concomitant]
     Dosage: UNK

REACTIONS (2)
  - Overdose [None]
  - Drug ineffective [None]
